FAERS Safety Report 8670745 (Version 8)
Quarter: 2013Q3

REPORT INFORMATION
  Report Type: Spontaneous
  Country: US (occurrence: US)
  Receive Date: 20120718
  Receipt Date: 20130820
  Transmission Date: 20140515
  Serious: Yes (Hospitalization, Disabling, Other)
  Sender: FDA-Public Use
  Company Number: US-009507513-1207USA003751

PATIENT
  Sex: Female
  Weight: 74.38 kg

DRUGS (11)
  1. FOSAMAX [Suspect]
     Indication: OSTEOPOROSIS
     Dosage: 70 MG, QW
     Route: 048
  2. FOSAMAX [Suspect]
     Dosage: 10 MG, QAM
     Route: 048
  3. ALENDRONATE SODIUM [Suspect]
     Dosage: 70 MG, UNK
  4. ACTONEL [Suspect]
     Indication: OSTEOPOROSIS
     Dosage: UNK
     Dates: start: 200406, end: 200910
  5. ACTONEL [Suspect]
     Indication: OSTEOPENIA
  6. HUMIRA [Concomitant]
     Indication: RHEUMATOID ARTHRITIS
     Dosage: 40 MG, UNK
     Dates: start: 1998, end: 201205
  7. HUMIRA [Concomitant]
     Indication: BONE LOSS
  8. MIACALCIN [Concomitant]
     Indication: OSTEOPOROSIS
     Dosage: UNK, QD
  9. CORTICOSTEROIDS (UNSPECIFIED) [Concomitant]
     Indication: ASTHMA
     Dosage: UNK
     Dates: start: 1968
  10. CORTICOSTEROIDS (UNSPECIFIED) [Concomitant]
     Indication: OSTEOPOROSIS
  11. METHOTREXATE [Concomitant]
     Indication: RHEUMATOID ARTHRITIS
     Dosage: 2.5 MG, QW

REACTIONS (64)
  - Femur fracture [Not Recovered/Not Resolved]
  - Open reduction of fracture [Unknown]
  - Cellulitis [Unknown]
  - Cellulitis [Recovered/Resolved]
  - Oesophageal infection [Recovered/Resolved]
  - Anaemia postoperative [Unknown]
  - Hypovolaemia [Unknown]
  - Oedema [Unknown]
  - Hypomagnesaemia [Unknown]
  - Thrombocytopenia [Unknown]
  - Oral candidiasis [Unknown]
  - Asthma [Unknown]
  - Pneumonia [Unknown]
  - Cardiac pacemaker insertion [Unknown]
  - Coronary artery bypass [Unknown]
  - Coronary arterial stent insertion [Unknown]
  - Soft tissue necrosis [Recovered/Resolved]
  - Skin infection [Recovered/Resolved]
  - Knee arthroplasty [Unknown]
  - Shoulder arthroplasty [Unknown]
  - Spinal operation [Unknown]
  - Lobar pneumonia [Recovered/Resolved]
  - Venous insufficiency [Recovered/Resolved]
  - Diarrhoea [Recovering/Resolving]
  - Impaired healing [Unknown]
  - Low turnover osteopathy [Unknown]
  - Arteriosclerosis [Unknown]
  - Myocardial ischaemia [Unknown]
  - Atrial fibrillation [Unknown]
  - Chronic obstructive pulmonary disease [Not Recovered/Not Resolved]
  - Hypothyroidism [Unknown]
  - Sick sinus syndrome [Unknown]
  - Mass [Unknown]
  - Rib fracture [Unknown]
  - Spinal compression fracture [Unknown]
  - Fall [Unknown]
  - Osteoarthritis [Unknown]
  - Gouty arthritis [Unknown]
  - Hyperuricaemia [Unknown]
  - Osteomyelitis [Unknown]
  - Myopathy [Unknown]
  - Anaemia [Unknown]
  - Cataract [Unknown]
  - Benign breast lump removal [Unknown]
  - Intervertebral disc protrusion [Unknown]
  - Knee operation [Unknown]
  - Mass excision [Unknown]
  - Lipoma excision [Unknown]
  - Carpal tunnel decompression [Unknown]
  - Carpal tunnel decompression [Unknown]
  - Tendon sheath incision [Unknown]
  - Kyphosis [Unknown]
  - Infection [Unknown]
  - Cardiac failure congestive [Unknown]
  - Dacryostenosis acquired [Unknown]
  - Eye operation [Unknown]
  - Blood potassium decreased [Unknown]
  - Oedema [Unknown]
  - Vitamin D deficiency [Unknown]
  - Calcium deficiency [Unknown]
  - Cardiac disorder [Unknown]
  - Gastrooesophageal reflux disease [Unknown]
  - Back pain [Unknown]
  - Abdominal discomfort [Unknown]
